FAERS Safety Report 4640498-7 (Version None)
Quarter: 2005Q2

REPORT INFORMATION
  Report Type: 
  Country: None (occurrence: None)
  Receive Date: 20050328
  Receipt Date: 20050131
  Transmission Date: 20051028
  Serious: No
  Sender: FDA-Public Use
  Company Number: USA050189528

PATIENT
  Sex: Male

DRUGS (4)
  1. STRATTERA [Suspect]
     Dosage: 40 MG DAY
     Dates: start: 20050101
  2. ADDERALL 20 [Concomitant]
  3. GEODON [Concomitant]
  4. LEXAPRO [Concomitant]

REACTIONS (1)
  - DRUG SCREEN POSITIVE [None]
